FAERS Safety Report 17683444 (Version 5)
Quarter: 2020Q3

REPORT INFORMATION
  Report Type: Report from Study
  Country: None (occurrence: US)
  Receive Date: 20200420
  Receipt Date: 20200916
  Transmission Date: 20201102
  Serious: Yes (Hospitalization, Other)
  Sender: FDA-Public Use
  Company Number: US-BIOVITRUM-2020US1832

PATIENT
  Age: 3 Year
  Sex: Female
  Weight: 22 kg

DRUGS (6)
  1. KINERET [Suspect]
     Active Substance: ANAKINRA
     Indication: JUVENILE IDIOPATHIC ARTHRITIS
     Route: 058
     Dates: start: 20200203
  2. PREDNISONE. [Concomitant]
     Active Substance: PREDNISONE
     Indication: STILL^S DISEASE
     Dosage: TAPERING
     Route: 048
     Dates: start: 202001
  3. CYCLOSPORINE. [Concomitant]
     Active Substance: CYCLOSPORINE
     Indication: STILL^S DISEASE
     Route: 048
     Dates: start: 202004
  4. KINERET [Suspect]
     Active Substance: ANAKINRA
     Route: 058
     Dates: start: 20200121, end: 20200820
  5. CALCIUM CARBONATE. [Concomitant]
     Active Substance: CALCIUM CARBONATE
     Indication: STEROID DEPENDENCE
     Route: 048
     Dates: start: 202001
  6. KINERET [Suspect]
     Active Substance: ANAKINRA
     Route: 058
     Dates: start: 20200204

REACTIONS (9)
  - Liver injury [Unknown]
  - Injection site reaction [Recovered/Resolved]
  - Coronavirus infection [Unknown]
  - Product dose omission issue [Unknown]
  - Urosepsis [Unknown]
  - Haemophagocytic lymphohistiocytosis [Unknown]
  - Renal injury [Unknown]
  - Escherichia urinary tract infection [Recovered/Resolved]
  - Off label use [Recovered/Resolved]

NARRATIVE: CASE EVENT DATE: 202001
